FAERS Safety Report 5295798-7 (Version None)
Quarter: 2007Q1

REPORT INFORMATION
  Report Type: 
  Country: None (occurrence: None)
  Receive Date: 20070201
  Receipt Date: 20061027
  Transmission Date: 20070707
  Serious: No
  Sender: FDA-Public Use
  Company Number: 2006PV024064

PATIENT
  Age: 57 Year
  Sex: Female
  Weight: 87.9978 kg

DRUGS (3)
  1. BYETTA [Suspect]
     Indication: DIABETES MELLITUS
     Dosage: SEE IMAGE
     Route: 058
     Dates: start: 20051001, end: 20060201
  2. BYETTA [Suspect]
     Indication: DIABETES MELLITUS
     Dosage: SEE IMAGE
     Route: 058
     Dates: start: 20060201
  3. FORTAMET [Concomitant]

REACTIONS (3)
  - BLOOD GLUCOSE INCREASED [None]
  - EARLY SATIETY [None]
  - NAUSEA [None]
